FAERS Safety Report 10246797 (Version 1)
Quarter: 2014Q2

REPORT INFORMATION
  Report Type: Spontaneous
  Country: US (occurrence: None)
  Receive Date: 20140617
  Receipt Date: 20140617
  Transmission Date: 20141212
  Serious: Yes (Other)
  Sender: FDA-Public Use
  Company Number: None

PATIENT
  Age: 69 Year
  Sex: Male
  Weight: 58.97 kg

DRUGS (1)
  1. RESTASIS 0.05 % [Suspect]
     Indication: EYE PAIN
     Dosage: 1 GTT OU BID TWICE DAILY INTO THE EYE
     Route: 047
     Dates: start: 20140508, end: 20140509

REACTIONS (3)
  - Sensation of foreign body [None]
  - Eye pain [None]
  - Insomnia [None]
